FAERS Safety Report 16192068 (Version 4)
Quarter: 2020Q4

REPORT INFORMATION
  Report Type: Report from Study
  Country: BR (occurrence: BR)
  Receive Date: 20190412
  Receipt Date: 20201014
  Transmission Date: 20210113
  Serious: Yes (Other)
  Sender: FDA-Public Use
  Company Number: PHHY2019BR081654

PATIENT
  Age: 54 Year
  Sex: Female

DRUGS (3)
  1. METHOTREXATE. [Suspect]
     Active Substance: METHOTREXATE
     Indication: PRODUCT USED FOR UNKNOWN INDICATION
     Route: 065
  2. COSENTYX [Suspect]
     Active Substance: SECUKINUMAB
     Dosage: UNK
     Route: 065
     Dates: start: 20190328
  3. COSENTYX [Suspect]
     Active Substance: SECUKINUMAB
     Indication: PSORIATIC ARTHROPATHY
     Dosage: 300 MG, UNK
     Route: 065
     Dates: start: 20190131, end: 20200229

REACTIONS (25)
  - Choking [Unknown]
  - Arthralgia [Recovering/Resolving]
  - Aspartate aminotransferase abnormal [Unknown]
  - Cough [Recovered/Resolved]
  - Pneumonia [Unknown]
  - Asthma [Recovered/Resolved]
  - Limb injury [Unknown]
  - Inflammation [Unknown]
  - Pain in extremity [Unknown]
  - Cervix carcinoma [Unknown]
  - Joint stiffness [Unknown]
  - Injection site pain [Unknown]
  - Neck pain [Unknown]
  - Immune system disorder [Unknown]
  - Swelling [Unknown]
  - Skin haemorrhage [Unknown]
  - Pneumonitis [Unknown]
  - Wheezing [Recovered/Resolved]
  - Dyspnoea [Recovered/Resolved]
  - Abscess limb [Unknown]
  - Erythema [Unknown]
  - Malaise [Unknown]
  - Alanine aminotransferase abnormal [Unknown]
  - Insomnia [Recovered/Resolved]
  - Localised infection [Unknown]

NARRATIVE: CASE EVENT DATE: 20190818
